FAERS Safety Report 8602314-8 (Version None)
Quarter: 2012Q3

REPORT INFORMATION
  Report Type: 
  Country: None (occurrence: None)
  Receive Date: 20120817
  Receipt Date: 20120814
  Transmission Date: 20120928
  Serious: Yes (Hospitalization)
  Sender: FDA-Public Use
  Company Number: US-PFIZER INC-2012198735

PATIENT
  Sex: Female

DRUGS (1)
  1. PRISTIQ [Suspect]
     Indication: ANXIETY
     Dosage: UNK

REACTIONS (6)
  - VISION BLURRED [None]
  - DISSOCIATION [None]
  - DIZZINESS [None]
  - OFF LABEL USE [None]
  - INSOMNIA [None]
  - FEELING ABNORMAL [None]
